FAERS Safety Report 25368801 (Version 1)
Quarter: 2025Q2

REPORT INFORMATION
  Report Type: Spontaneous
  Country: JP (occurrence: JP)
  Receive Date: 20250528
  Receipt Date: 20250528
  Transmission Date: 20250716
  Serious: Yes (Hospitalization)
  Sender: MYLAN
  Company Number: JP-VIATRISJAPAN-2025M1043649AA

PATIENT
  Age: 93 Year
  Sex: Female

DRUGS (4)
  1. NORVASC [Suspect]
     Active Substance: AMLODIPINE BESYLATE
     Indication: Hypertension
  2. NORVASC [Suspect]
     Active Substance: AMLODIPINE BESYLATE
     Route: 048
  3. NORVASC [Suspect]
     Active Substance: AMLODIPINE BESYLATE
     Route: 048
  4. NORVASC [Suspect]
     Active Substance: AMLODIPINE BESYLATE

REACTIONS (1)
  - Orthostatic hypotension [Recovering/Resolving]
